FAERS Safety Report 9551587 (Version 1)
Quarter: 2013Q3

REPORT INFORMATION
  Report Type: Spontaneous
  Country: US (occurrence: None)
  Receive Date: 20130724
  Receipt Date: 20130724
  Transmission Date: 20140515
  Serious: Yes (Other)
  Sender: FDA-Public Use
  Company Number: PHEH2012US009784

PATIENT
  Age: 46 Year
  Sex: Female

DRUGS (5)
  1. DIOVAN HCT (VALSARTAN, HYDROCHLOROTHIAZIDE) UNKNOWN [Suspect]
     Indication: HYPERTENSION
     Route: 048
     Dates: start: 20120402, end: 20120506
  2. LORATAB (LORATADINE) [Concomitant]
  3. LUNESTA (ESZOPICLONE) [Concomitant]
  4. FLEXIOL [Concomitant]
  5. FLEXARIL [Concomitant]

REACTIONS (4)
  - Hypotension [None]
  - Stress [None]
  - Anaemia [None]
  - Hypertension [None]
